FAERS Safety Report 18560826 (Version 2)
Quarter: 2020Q4

REPORT INFORMATION
  Report Type: Spontaneous
  Country: CH (occurrence: CH)
  Receive Date: 20201130
  Receipt Date: 20201214
  Transmission Date: 20210114
  Serious: Yes (Death)
  Sender: FDA-Public Use
  Company Number: CH-ELI_LILLY_AND_COMPANY-CH202011011901

PATIENT
  Age: 86 Year
  Sex: Female

DRUGS (1)
  1. FORSTEO 250UG/ML [Suspect]
     Active Substance: TERIPARATIDE
     Indication: FRACTURE
     Dosage: UNK UNK, UNKNOWN
     Route: 065

REACTIONS (3)
  - Cardiac failure [Fatal]
  - Meningitis [Not Recovered/Not Resolved]
  - Off label use [Unknown]

NARRATIVE: CASE EVENT DATE: 20200817
